FAERS Safety Report 9048958 (Version 1)
Quarter: 2013Q1

REPORT INFORMATION
  Report Type: Spontaneous
  Country: US (occurrence: None)
  Receive Date: 20130129
  Receipt Date: 20130129
  Transmission Date: 20140127
  Serious: Yes (Other)
  Sender: FDA-Public Use
  Company Number: None

PATIENT
  Sex: Male
  Weight: 96.8 kg

DRUGS (1)
  1. FENTANYL PATCHES [Suspect]
     Indication: PAIN
     Dosage: 100 MCG/24 HOUR   1 EVERY 72 HOURS   TOPICALLY?12/21/2009   -   11/4/2011
     Route: 061
     Dates: start: 20091221, end: 20111104

REACTIONS (3)
  - Hyperhidrosis [None]
  - Product adhesion issue [None]
  - Hair growth abnormal [None]
